APPROVED DRUG PRODUCT: FLAGYL
Active Ingredient: METRONIDAZOLE
Strength: 375MG
Dosage Form/Route: CAPSULE;ORAL
Application: N020334 | Product #001 | TE Code: AB
Applicant: PFIZER INC
Approved: May 3, 1995 | RLD: Yes | RS: Yes | Type: RX